FAERS Safety Report 19608908 (Version 1)
Quarter: 2021Q3

REPORT INFORMATION
  Report Type: Spontaneous
  Country: US (occurrence: US)
  Receive Date: 20210725
  Receipt Date: 20210725
  Transmission Date: 20211014
  Serious: Yes (Other)
  Sender: FDA-Public Use
  Company Number: None

PATIENT
  Age: 49 Year
  Sex: Female

DRUGS (5)
  1. RINVOQ [Suspect]
     Active Substance: UPADACITINIB
  2. XELJANZ [Suspect]
     Active Substance: TOFACITINIB CITRATE
  3. ORENCIA [Suspect]
     Active Substance: ABATACEPT
  4. ENBREL [Suspect]
     Active Substance: ETANERCEPT
  5. HUMIRA [Suspect]
     Active Substance: ADALIMUMAB

REACTIONS (2)
  - Toxicity to various agents [None]
  - Infection [None]

NARRATIVE: CASE EVENT DATE: 20210723
